FAERS Safety Report 8735602 (Version 2)
Quarter: 2012Q4

REPORT INFORMATION
  Report Type: 
  Country: US (occurrence: US)
  Receive Date: 20120822
  Receipt Date: 20120912
  Transmission Date: 20130627
  Serious: No
  Sender: FDA-Public Use
  Company Number: US-PFIZER INC-2012202807

PATIENT
  Age: 73 Year
  Sex: Female
  Weight: 75.74 kg

DRUGS (3)
  1. NORVASC [Suspect]
     Indication: HYPERTENSION
     Dosage: UNK
  2. NORVASC [Suspect]
     Dosage: 5 mg, daily
  3. DIOVAN [Concomitant]
     Indication: HYPERTENSION
     Dosage: 80 mg, daily

REACTIONS (2)
  - Memory impairment [Not Recovered/Not Resolved]
  - Confusional state [Not Recovered/Not Resolved]
